FAERS Safety Report 10098051 (Version 1)
Quarter: 2014Q2

REPORT INFORMATION
  Report Type: Spontaneous
  Country: US (occurrence: None)
  Receive Date: 20140421
  Receipt Date: 20140421
  Transmission Date: 20141212
  Serious: Yes (Other)
  Sender: FDA-Public Use
  Company Number: 2014P1003092

PATIENT
  Age: 16 Year
  Sex: Male

DRUGS (2)
  1. MYORISAN [Suspect]
     Indication: ACNE
     Route: 048
  2. ALUMINUM CHLORIDE [Concomitant]

REACTIONS (3)
  - Anger [None]
  - Irritability [None]
  - Drug effect decreased [None]
